FAERS Safety Report 8357870-4 (Version None)
Quarter: 2012Q2

REPORT INFORMATION
  Report Type: 
  Country: None (occurrence: None)
  Receive Date: 20120514
  Receipt Date: 20120430
  Transmission Date: 20120825
  Serious: Yes (Death)
  Sender: FDA-Public Use
  Company Number: PHHY2012TW040339

PATIENT

DRUGS (3)
  1. CORTICOSTEROIDS [Concomitant]
     Indication: HEART TRANSPLANT
     Dosage: UNK UKN, UNK
  2. BASILIXIMAB [Concomitant]
     Indication: HEART TRANSPLANT
  3. NEORAL [Suspect]
     Indication: HEART TRANSPLANT
     Dosage: 10 MG/KG/DAY

REACTIONS (1)
  - HEART TRANSPLANT REJECTION [None]
